FAERS Safety Report 16434250 (Version 1)
Quarter: 2019Q2

REPORT INFORMATION
  Report Type: Report from Study
  Country: US (occurrence: US)
  Receive Date: 20190614
  Receipt Date: 20190614
  Transmission Date: 20190711
  Serious: Yes (Other)
  Sender: FDA-Public Use
  Company Number: US-AMGEN-USASL2019018471

PATIENT
  Age: 61 Year
  Sex: Male
  Weight: 85.26 kg

DRUGS (22)
  1. COSAMIN DS [Concomitant]
     Dosage: 500-400MG, BID
     Route: 048
     Dates: start: 20150309
  2. METRONIDAZOLE. [Concomitant]
     Active Substance: METRONIDAZOLE
     Indication: DIVERTICULITIS
  3. AMLODIPINE BESYLATE. [Concomitant]
     Active Substance: AMLODIPINE BESYLATE
     Indication: HYPERTENSION
     Dosage: 5 MG, QD
     Route: 048
     Dates: start: 20170329
  4. ASPIRIN. [Concomitant]
     Active Substance: ASPIRIN
     Dosage: 81 MG, QD
     Dates: start: 20081028
  5. NEILMED SINUS RINSE [Concomitant]
     Active Substance: SODIUM BICARBONATE\SODIUM CHLORIDE
     Dosage: UNK UNK, BID
     Route: 045
     Dates: start: 20150107
  6. VERAMYST [Concomitant]
     Active Substance: FLUTICASONE FUROATE
     Indication: MULTIPLE ALLERGIES
     Dosage: 27.5 UNK, QD (2 SPRAYS IN EACH NOSTRIL)
     Route: 045
     Dates: start: 20121120
  7. REPATHA [Suspect]
     Active Substance: EVOLOCUMAB
     Indication: BLOOD CHOLESTEROL ABNORMAL
  8. MONTELUKAST SODIUM. [Concomitant]
     Active Substance: MONTELUKAST SODIUM
     Indication: ASTHMA
     Dosage: 10 MG, QD
     Route: 048
     Dates: start: 20150102
  9. CAPSAICIN. [Concomitant]
     Active Substance: CAPSAICIN
     Dosage: UNK (0.1%), QID
     Route: 061
     Dates: start: 20150309
  10. CIPRO [Concomitant]
     Active Substance: CIPROFLOXACIN HYDROCHLORIDE
     Indication: DIVERTICULITIS
  11. ALVESCO [Concomitant]
     Active Substance: CICLESONIDE
     Indication: ASTHMA
     Dosage: 160 MUG, BID (2 PUFFS)
     Route: 055
     Dates: start: 20121120
  12. VITAMIN D [Concomitant]
     Active Substance: VITAMIN D NOS
     Dosage: 2000 UNIT, QD
     Route: 048
     Dates: start: 201209
  13. NITROGLYCERINE [Concomitant]
     Active Substance: NITROGLYCERIN
     Indication: ARTERIOSCLEROSIS CORONARY ARTERY
     Dosage: UNK UNK, AS NECESSARY
  14. REPATHA [Suspect]
     Active Substance: EVOLOCUMAB
     Indication: TYPE IIB HYPERLIPIDAEMIA
     Dosage: 140 MG, Q2WK
     Route: 058
     Dates: start: 20181219, end: 201905
  15. FENOFIBRATE. [Concomitant]
     Active Substance: FENOFIBRATE
     Indication: HYPERTRIGLYCERIDAEMIA
     Dosage: 145 MG, QD
  16. ASA [Concomitant]
     Active Substance: ASPIRIN
     Dosage: 81 MG, QD
  17. LEVALBUTEROL HCL [Concomitant]
     Active Substance: LEVALBUTEROL HYDROCHLORIDE
     Indication: ASTHMA
     Dosage: 1.25 MG/3ML, QID (UPTO 4 TIMES A DAY/NEBULIZE ONCE IN 4-6HRS)
     Route: 055
     Dates: start: 20160106
  18. XOPENEX HFA [Concomitant]
     Active Substance: LEVALBUTEROL TARTRATE
     Indication: ASTHMA
     Dosage: 45 MUG, AS NECESSARY (INHALE 1 TO 2 PUFFS EVERY 4 TO 6 HOURS IF NEEDED)
     Route: 055
     Dates: start: 20120918
  19. BRILINTA [Concomitant]
     Active Substance: TICAGRELOR
     Dosage: 90 MG, BID
     Route: 048
     Dates: start: 20190119
  20. ZETIA [Concomitant]
     Active Substance: EZETIMIBE
     Indication: TYPE IIB HYPERLIPIDAEMIA
     Dosage: 10 MG, QD
     Route: 048
     Dates: start: 20170504
  21. LOSARTAN POTASSIUM. [Concomitant]
     Active Substance: LOSARTAN POTASSIUM
     Indication: HYPERTENSION
     Dosage: 100 MG, QD
     Route: 048
     Dates: start: 20180813
  22. VITAMIN D [Concomitant]
     Active Substance: VITAMIN D NOS
     Dosage: 4000 UNIT, QD
     Route: 048
     Dates: start: 20120812

REACTIONS (7)
  - Stent placement [Unknown]
  - Back pain [Not Recovered/Not Resolved]
  - Injection site bruising [Recovered/Resolved]
  - Haemorrhage [Unknown]
  - Blood cholesterol decreased [Not Recovered/Not Resolved]
  - Arthralgia [Recovering/Resolving]
  - Injection site haemorrhage [Recovered/Resolved]

NARRATIVE: CASE EVENT DATE: 201901
